FAERS Safety Report 5607995-9 (Version None)
Quarter: 2008Q1

REPORT INFORMATION
  Report Type: 
  Country: None (occurrence: None)
  Receive Date: 20080130
  Receipt Date: 20080121
  Transmission Date: 20080703
  Serious: Yes (Death, Life-Threatening, Hospitalization)
  Sender: FDA-Public Use
  Company Number: B0504865A

PATIENT
  Age: 53 Year
  Sex: Male
  Weight: 56 kg

DRUGS (18)
  1. ALKERAN [Suspect]
     Indication: ALLOGENIC BONE MARROW TRANSPLANTATION THERAPY
     Dosage: 140MGM2 PER DAY
     Route: 042
     Dates: start: 20070329, end: 20070329
  2. CYCLOSPORINE [Suspect]
     Indication: IMMUNOSUPPRESSION
     Dosage: 84MG PER DAY
     Dates: start: 20070403, end: 20070425
  3. GRAN [Concomitant]
     Dates: start: 20070409, end: 20070415
  4. METHYLPREDNISOLONE [Concomitant]
     Indication: IMMUNOSUPPRESSION
     Dosage: 60MG PER DAY
     Dates: start: 20070411, end: 20070529
  5. ISCOTIN [Concomitant]
     Dosage: 300MG PER DAY
     Route: 048
     Dates: start: 20070329, end: 20070402
  6. LOMEFLOXACIN [Concomitant]
     Dosage: 200MG PER DAY
     Route: 048
     Dates: start: 20070329, end: 20070404
  7. NYSTATIN [Concomitant]
     Dosage: 1.5IU6 PER DAY
     Route: 048
     Dates: start: 20070329, end: 20070414
  8. URSO 250 [Concomitant]
     Route: 048
     Dates: start: 20070329, end: 20070414
  9. ZOVIRAX [Concomitant]
     Route: 048
     Dates: start: 20070329, end: 20070503
  10. MEROPEN [Concomitant]
     Dosage: .5G PER DAY
     Dates: start: 20070406, end: 20070415
  11. MICAFUNGIN [Concomitant]
     Dosage: 150MG PER DAY
     Dates: start: 20070410, end: 20070415
  12. DALACIN [Concomitant]
     Dosage: 1200MG PER DAY
     Dates: start: 20070410, end: 20070416
  13. PHENOBAL [Concomitant]
     Dosage: 100MG PER DAY
     Dates: start: 20070425, end: 20070430
  14. ALEVIATIN [Concomitant]
     Dosage: 250MG PER DAY
     Dates: start: 20070425, end: 20070501
  15. UNSPECIFIED DRUG [Concomitant]
     Dosage: 70MG PER DAY
     Dates: start: 20070502, end: 20070523
  16. UNSPECIFIED DRUG [Concomitant]
     Dosage: .5G PER DAY
     Dates: start: 20070503, end: 20070516
  17. PRODIF [Concomitant]
     Dosage: 200MG PER DAY
     Dates: start: 20070513, end: 20070518
  18. MAXIPIME [Concomitant]
     Dosage: 4G PER DAY
     Dates: start: 20070519, end: 20070529

REACTIONS (5)
  - GASTROINTESTINAL HAEMORRHAGE [None]
  - MELAENA [None]
  - RENAL FAILURE ACUTE [None]
  - TOXIC ENCEPHALOPATHY [None]
  - VENOOCCLUSIVE LIVER DISEASE [None]
